FAERS Safety Report 9817580 (Version 1)
Quarter: 2013Q4

REPORT INFORMATION
  Report Type: Spontaneous
  Country: US (occurrence: None)
  Receive Date: 20131223
  Receipt Date: 20131223
  Transmission Date: 20140711
  Serious: No
  Sender: FDA-Public Use
  Company Number: 219289

PATIENT
  Age: 62 Year
  Sex: Female

DRUGS (2)
  1. PICATO GEL [Suspect]
     Indication: ACTINIC KERATOSIS
     Dosage: (DAILY; ONLY 1 APPLICATION), DERMAL
     Dates: start: 20120928
  2. EUCERIN CREAM (EUCERIN /01160201/) [Concomitant]

REACTIONS (6)
  - Application site burn [None]
  - Application site erythema [None]
  - Application site pain [None]
  - Drug administration error [None]
  - Drug administered at inappropriate site [None]
  - Incorrect drug administration duration [None]
